FAERS Safety Report 7773298-X (Version None)
Quarter: 2011Q3

REPORT INFORMATION
  Report Type: 
  Country: None (occurrence: None)
  Receive Date: 20110922
  Receipt Date: 20110913
  Transmission Date: 20111222
  Serious: No
  Sender: FDA-Public Use
  Company Number: US-B.I. PHARMACEUTICALS,INC./RIDGEFIELD-2011-BP-18421BP

PATIENT
  Sex: Male

DRUGS (4)
  1. PRADAXA [Suspect]
     Indication: ATRIAL FIBRILLATION
     Dosage: 300 MG
     Route: 048
  2. PRADAXA [Suspect]
     Indication: ANTICOAGULANT THERAPY
  3. CIMZIA [Concomitant]
     Indication: CROHN'S DISEASE
  4. PRADAXA [Suspect]
     Indication: CARDIAC DISORDER

REACTIONS (6)
  - CONTUSION [None]
  - SKIN HAEMORRHAGE [None]
  - SKIN FRAGILITY [None]
  - LACERATION [None]
  - BLOOD VISCOSITY INCREASED [None]
  - SKIN ATROPHY [None]
